FAERS Safety Report 6137052-7 (Version None)
Quarter: 2009Q1

REPORT INFORMATION
  Report Type: 
  Country: None (occurrence: None)
  Receive Date: 20090326
  Receipt Date: 20090326
  Transmission Date: 20090719
  Serious: No
  Sender: FDA-Public Use
  Company Number: None

PATIENT
  Sex: Female

DRUGS (1)
  1. REGADENOSON [Suspect]
     Indication: DIAGNOSTIC PROCEDURE
     Dosage: ONCE IV
     Route: 042
     Dates: start: 20090210

REACTIONS (5)
  - CHEST DISCOMFORT [None]
  - DIZZINESS [None]
  - HYPOAESTHESIA [None]
  - MALAISE [None]
  - NAUSEA [None]
